FAERS Safety Report 8402990-9 (Version None)
Quarter: 2012Q2

REPORT INFORMATION
  Report Type: 
  Country: None (occurrence: None)
  Receive Date: 20120601
  Receipt Date: 20120529
  Transmission Date: 20120825
  Serious: Yes (Other)
  Sender: FDA-Public Use
  Company Number: FR-ABBOTT-12P-056-0940913-00

PATIENT
  Age: 38 Year
  Sex: Female

DRUGS (1)
  1. DEPAKENE [Suspect]
     Indication: PRODUCT USED FOR UNKNOWN INDICATION
     Route: 048
     Dates: start: 19740101

REACTIONS (1)
  - ABORTION INDUCED [None]
